FAERS Safety Report 20119489 (Version 1)
Quarter: 2021Q4

REPORT INFORMATION
  Report Type: Report from Study
  Country: BR (occurrence: BR)
  Receive Date: 20211126
  Receipt Date: 20211126
  Transmission Date: 20220304
  Serious: Yes (Other)
  Sender: FDA-Public Use
  Company Number: BR-NOVARTISPH-NVSC2021BR261436

PATIENT
  Age: 48 Year
  Sex: Female

DRUGS (10)
  1. TAMOXIFEN [Suspect]
     Active Substance: TAMOXIFEN
     Indication: Invasive breast carcinoma
     Dosage: UNK
     Route: 065
     Dates: start: 201708
  2. RIBOCICLIB [Suspect]
     Active Substance: RIBOCICLIB
     Indication: Invasive breast carcinoma
     Dosage: UNK
     Route: 065
     Dates: start: 202108
  3. FULVESTRANT [Suspect]
     Active Substance: FULVESTRANT
     Indication: Invasive breast carcinoma
     Dosage: UNK
     Route: 065
     Dates: start: 202109
  4. CISPLATIN [Concomitant]
     Active Substance: CISPLATIN
     Indication: Invasive breast carcinoma
     Dosage: UNK
     Route: 065
     Dates: start: 201807
  5. GEMCITABINE [Concomitant]
     Active Substance: GEMCITABINE
     Indication: Invasive breast carcinoma
     Dosage: UNK
     Route: 065
     Dates: start: 201806
  6. DOCETAXEL [Concomitant]
     Active Substance: DOCETAXEL
     Indication: Invasive breast carcinoma
     Dosage: UNK
     Route: 065
     Dates: start: 201902
  7. ZOLEDRONIC ACID [Concomitant]
     Active Substance: ZOLEDRONIC ACID
     Indication: Invasive breast carcinoma
     Dosage: UNK
     Route: 065
     Dates: start: 201902
  8. VINORELBINE TARTRATE [Concomitant]
     Active Substance: VINORELBINE TARTRATE
     Indication: Invasive breast carcinoma
     Dosage: UNK
     Route: 065
     Dates: start: 202001, end: 202008
  9. DOXORUBICIN HYDROCHLORIDE [Concomitant]
     Active Substance: DOXORUBICIN HYDROCHLORIDE
     Indication: Invasive breast carcinoma
     Dosage: UNK
     Route: 065
     Dates: start: 202102, end: 202106
  10. CMF [Concomitant]
     Indication: Invasive breast carcinoma
     Dosage: UNK
     Route: 065
     Dates: start: 202107

REACTIONS (14)
  - Neuropathy peripheral [Unknown]
  - Ototoxicity [Unknown]
  - Invasive breast carcinoma [Unknown]
  - Malignant neoplasm progression [Unknown]
  - Breast cancer metastatic [Unknown]
  - Metastases to liver [Unknown]
  - Metastases to bone [Unknown]
  - Haematotoxicity [Unknown]
  - Eastern Cooperative Oncology Group performance status worsened [Recovering/Resolving]
  - Hepatomegaly [Recovering/Resolving]
  - Enzyme level increased [Unknown]
  - Hypoacusis [Unknown]
  - Depression [Unknown]
  - Apathy [Unknown]

NARRATIVE: CASE EVENT DATE: 20180601
